FAERS Safety Report 25343428 (Version 1)
Quarter: 2025Q2

REPORT INFORMATION
  Report Type: Report from Study
  Country: US (occurrence: US)
  Receive Date: 20250521
  Receipt Date: 20250521
  Transmission Date: 20250716
  Serious: Yes (Other)
  Sender: MALLINCKRODT
  Company Number: US-MALLINCKRODT-MNK202501455

PATIENT
  Age: 50 Year
  Sex: Female

DRUGS (2)
  1. CORTICOTROPIN [Suspect]
     Active Substance: CORTICOTROPIN
     Indication: Parophthalmia
     Dates: start: 20250305, end: 2025
  2. CORTICOTROPIN [Suspect]
     Active Substance: CORTICOTROPIN
     Dosage: 80 UNITS
     Dates: start: 2025

REACTIONS (8)
  - Systemic lupus erythematosus [Unknown]
  - Eye inflammation [Unknown]
  - Intraocular pressure increased [Unknown]
  - Pain [Unknown]
  - Migraine [Unknown]
  - Insomnia [Recovering/Resolving]
  - Injection site discharge [Unknown]
  - Underdose [Unknown]

NARRATIVE: CASE EVENT DATE: 20250305
